FAERS Safety Report 15746579 (Version 2)
Quarter: 2019Q2

REPORT INFORMATION
  Report Type: Spontaneous
  Country: US (occurrence: US)
  Receive Date: 20181220
  Receipt Date: 20190403
  Transmission Date: 20190711
  Serious: No
  Sender: FDA-Public Use
  Company Number: US-PRINSTON PHARMACEUTICAL INC.-2018PRN01187

PATIENT
  Sex: Female
  Weight: 64.4 kg

DRUGS (1)
  1. VALSARTAN. [Suspect]
     Active Substance: VALSARTAN
     Indication: HYPERTENSION
     Dosage: 320 MG, 1X/DAY
     Route: 048
     Dates: start: 2018

REACTIONS (10)
  - Balance disorder [Not Recovered/Not Resolved]
  - Blood pressure fluctuation [Recovered/Resolved]
  - Palpitations [Not Recovered/Not Resolved]
  - Liver disorder [Unknown]
  - Therapeutic product effect incomplete [Recovered/Resolved]
  - Hypertension [Recovered/Resolved]
  - Hepatic enzyme increased [Unknown]
  - Headache [Not Recovered/Not Resolved]
  - Dizziness [Not Recovered/Not Resolved]
  - Nausea [Not Recovered/Not Resolved]

NARRATIVE: CASE EVENT DATE: 2018
